FAERS Safety Report 22635833 (Version 1)
Quarter: 2023Q2

REPORT INFORMATION
  Report Type: Spontaneous
  Country: NL (occurrence: NL)
  Receive Date: 20230623
  Receipt Date: 20230623
  Transmission Date: 20230722
  Serious: Yes (Hospitalization)
  Sender: FDA-Public Use
  Company Number: None

PATIENT
  Sex: Male
  Weight: 95.6 kg

DRUGS (3)
  1. BEVACIZUMAB [Suspect]
     Active Substance: BEVACIZUMAB
     Indication: Rectal cancer
     Dosage: 800 MILLIGRAM ONLY ON DAY 1
     Route: 065
     Dates: start: 20230426
  2. OXALIPLATIN [Suspect]
     Active Substance: OXALIPLATIN
     Indication: Rectal cancer
     Dosage: 285 MILLIGRAM,1X 285MG IN TWO HOURS ON DAY 1
     Route: 065
     Dates: start: 20230426
  3. CAPECITABINE [Suspect]
     Active Substance: CAPECITABINE
     Indication: Rectal cancer
     Dosage: 150 MILLIGRAM,BID, 2XPER DAY 1 PIECE, EVERY 12H
     Route: 065
     Dates: start: 20230426, end: 20230504

REACTIONS (2)
  - Electrolyte imbalance [Recovering/Resolving]
  - Enteritis [Recovering/Resolving]
